FAERS Safety Report 8624497-6 (Version None)
Quarter: 2012Q3

REPORT INFORMATION
  Report Type: 
  Country: None (occurrence: None)
  Receive Date: 20120827
  Receipt Date: 20120815
  Transmission Date: 20120928
  Serious: Yes (Other)
  Sender: FDA-Public Use
  Company Number: JP-VERTEX PHARMACEUTICAL INC.-2012-019862

PATIENT
  Age: 52 Year
  Sex: Male

DRUGS (10)
  1. PEGINTERFERON ALFA-2B [Concomitant]
     Indication: HEPATITIS C
     Dosage: 1.25 UNK, UNK
     Route: 058
     Dates: start: 20120702, end: 20120717
  2. PEGINTERFERON ALFA-2B [Concomitant]
     Dosage: UNK
  3. AMLODIPINE BESYLATE [Concomitant]
     Dosage: 2.5 MG, QD
     Route: 048
  4. PEGINTERFERON ALFA-2B [Concomitant]
     Dosage: 1.0 A?G/KG, UNK
     Route: 058
     Dates: start: 20120723
  5. VX-950 [Suspect]
     Indication: HEPATITIS C
     Dosage: 1500 MG, QD
     Route: 048
     Dates: start: 20120702
  6. PROHEPARUM [Concomitant]
     Dosage: 3 DF, QD
     Route: 048
  7. OLMESARTAN MEDOXOMIL [Concomitant]
     Dosage: 20 MG, QD
     Route: 048
  8. URSODIOL [Concomitant]
     Dosage: 600 MG, QD
     Route: 048
  9. RIBAVIRIN [Concomitant]
     Indication: HEPATITIS C
     Dosage: 800 MG, QD
     Route: 048
  10. LANSOPRAZOLE [Concomitant]
     Dosage: 30 MG, QD
     Route: 048

REACTIONS (1)
  - WHITE BLOOD CELL COUNT DECREASED [None]
